FAERS Safety Report 17821435 (Version 1)
Quarter: 2020Q2

REPORT INFORMATION
  Report Type: Other
  Country: DE (occurrence: DE)
  Receive Date: 20200525
  Receipt Date: 20200525
  Transmission Date: 20200714
  Serious: Yes (Congenital Anomaly, Other)
  Sender: FDA-Public Use
  Company Number: DE-LUPIN PHARMACEUTICALS INC.-2020-02354

PATIENT
  Age: 0 Day
  Sex: Male
  Weight: 3.23 kg

DRUGS (5)
  1. SERTRALINE [Suspect]
     Active Substance: SERTRALINE HYDROCHLORIDE
     Indication: ANXIETY DISORDER
     Dosage: 100 MILLIGRAM, QD (0-37.1GESTATIONAL WEEK)
     Route: 064
     Dates: start: 20180828, end: 20190515
  2. QUETIAPINE FUMARATE. [Suspect]
     Active Substance: QUETIAPINE FUMARATE
     Indication: PSYCHOTIC DISORDER
     Dosage: 200 MILLIGRAM, QD (BIS 100 MG/D)
     Route: 064
     Dates: start: 20180828, end: 20190515
  3. ANTABUS [Suspect]
     Active Substance: DISULFIRAM
     Indication: ALCOHOLISM
     Dosage: 1000 MG, WEEKLY (500 MG TWICE A WEEK)
     Route: 064
  4. FOLSAN [Concomitant]
     Active Substance: FOLIC ACID
     Indication: PROPHYLAXIS OF NEURAL TUBE DEFECT
     Dosage: 5 MILLIGRAM, QD(12-37.1 GESTATIONAL WEEK )
     Route: 064
  5. EPHEDRIN [Concomitant]
     Active Substance: EPHEDRINE HYDROCHLORIDE
     Indication: SUBSTANCE USE
     Dosage: UNK ((IT WAS DETECTED IN DRUG SCREENING 3 MONTHS AFTER DELIVERY, UNKNOWN IF TAKEN DURING PREGNANCY )
     Route: 064

REACTIONS (4)
  - Foetal exposure during pregnancy [Unknown]
  - Atrial septal defect [Recovered/Resolved]
  - Agitation neonatal [Recovered/Resolved]
  - Hypertonia neonatal [Recovered/Resolved]

NARRATIVE: CASE EVENT DATE: 20190515
